FAERS Safety Report 5197793-5 (Version None)
Quarter: 2006Q4

REPORT INFORMATION
  Report Type: 
  Country: None (occurrence: None)
  Receive Date: 20061228
  Receipt Date: 20061213
  Transmission Date: 20070319
  Serious: Yes (Hospitalization, Other)
  Sender: FDA-Public Use
  Company Number: 15367

PATIENT
  Age: 49 Year
  Sex: 0

DRUGS (1)
  1. AMIODARONE HCL [Suspect]
     Dosage: 1.2 G FREQ UNK IV
     Route: 042
     Dates: start: 20061128, end: 20061129

REACTIONS (2)
  - PHLEBITIS [None]
  - SKIN INFLAMMATION [None]
